FAERS Safety Report 13676468 (Version 2)
Quarter: 2020Q3

REPORT INFORMATION
  Report Type: Report from Study
  Country: SG (occurrence: SG)
  Receive Date: 20170622
  Receipt Date: 20170804
  Transmission Date: 20201105
  Serious: Yes (Death, Hospitalization)
  Sender: FDA-Public Use
  Company Number: SG-ASTRAZENECA-2016SE16962

PATIENT
  Age: 16116 Day
  Sex: Male

DRUGS (12)
  1. MEDI4736 [Suspect]
     Active Substance: DURVALUMAB
     Indication: NON-SMALL CELL LUNG CANCER
     Route: 042
     Dates: start: 20160114, end: 20160114
  2. LOMOTIL [Concomitant]
     Active Substance: ATROPINE SULFATE\DIPHENOXYLATE HYDROCHLORIDE
     Indication: PROPHYLAXIS AGAINST DIARRHOEA
     Route: 048
     Dates: start: 20151118, end: 20160625
  3. MEDI4736 [Suspect]
     Active Substance: DURVALUMAB
     Indication: NON-SMALL CELL LUNG CANCER
     Route: 042
     Dates: start: 20151217, end: 20151217
  4. TREMELIMUMAB. [Suspect]
     Active Substance: TREMELIMUMAB
     Indication: NON-SMALL CELL LUNG CANCER
     Route: 042
     Dates: start: 20151118, end: 20151118
  5. PROCODIN [Concomitant]
     Indication: COUGH
     Route: 048
     Dates: start: 20151111, end: 20151203
  6. TREMELIMUMAB. [Suspect]
     Active Substance: TREMELIMUMAB
     Indication: NON-SMALL CELL LUNG CANCER
     Route: 042
     Dates: start: 20151217, end: 20151217
  7. TREMELIMUMAB. [Suspect]
     Active Substance: TREMELIMUMAB
     Indication: NON-SMALL CELL LUNG CANCER
     Route: 042
     Dates: start: 20160114, end: 20160114
  8. PANADOL [Concomitant]
     Active Substance: ACETAMINOPHEN
     Indication: PAIN
     Dosage: 4.0G AS REQUIRED
     Route: 048
     Dates: start: 20151118, end: 20160215
  9. PANADOL [Concomitant]
     Active Substance: ACETAMINOPHEN
     Indication: PYREXIA
     Dosage: 4.0G AS REQUIRED
     Route: 048
     Dates: start: 20151118, end: 20160215
  10. FLUIMUCIL [Concomitant]
     Active Substance: ACETYLCYSTEINE
     Indication: COUGH
     Route: 048
     Dates: start: 20151118, end: 20151203
  11. MEDI4736 [Suspect]
     Active Substance: DURVALUMAB
     Indication: NON-SMALL CELL LUNG CANCER
     Route: 042
     Dates: start: 20151118, end: 20151118
  12. METOCLOPRAMIDE. [Concomitant]
     Active Substance: METOCLOPRAMIDE
     Indication: PROPHYLAXIS OF NAUSEA AND VOMITING
     Route: 048
     Dates: start: 20151118, end: 20160625

REACTIONS (1)
  - Dyspnoea [Not Recovered/Not Resolved]

NARRATIVE: CASE EVENT DATE: 20151119
